FAERS Safety Report 21023894 (Version 2)
Quarter: 2022Q3

REPORT INFORMATION
  Report Type: Spontaneous
  Country: US (occurrence: US)
  Receive Date: 20220629
  Receipt Date: 20220701
  Transmission Date: 20221026
  Serious: Yes (Death, Other)
  Sender: FDA-Public Use
  Company Number: US-BIOVITRUM-2022US08342

PATIENT
  Age: 10 Year
  Sex: Female

DRUGS (3)
  1. GAMIFANT [Suspect]
     Active Substance: EMAPALUMAB-LZSG
     Indication: Cytogenetic abnormality
  2. ECULIZUMAB [Suspect]
     Active Substance: ECULIZUMAB
     Indication: Transplant rejection
  3. GAMIFANT [Suspect]
     Active Substance: EMAPALUMAB-LZSG
     Indication: Transplant rejection

REACTIONS (4)
  - Respiratory failure [Fatal]
  - Human herpesvirus 6 encephalitis [Fatal]
  - Sepsis [Fatal]
  - Off label use [Unknown]
